FAERS Safety Report 15073093 (Version 1)
Quarter: 2018Q2

REPORT INFORMATION
  Report Type: Spontaneous
  Country: GB (occurrence: GB)
  Receive Date: 20180627
  Receipt Date: 20180627
  Transmission Date: 20180711
  Serious: Yes (Life-Threatening)
  Sender: FDA-Public Use
  Company Number: GB-ROCHE-2144204

PATIENT
  Age: 74 Year
  Sex: Female
  Weight: 49.8 kg

DRUGS (10)
  1. FENTANYL. [Concomitant]
     Active Substance: FENTANYL
     Route: 065
  2. DEXAMETHASONE. [Concomitant]
     Active Substance: DEXAMETHASONE
     Route: 065
  3. ATEZOLIZUMAB. [Suspect]
     Active Substance: ATEZOLIZUMAB
     Indication: LUNG ADENOCARCINOMA STAGE IV
     Route: 042
     Dates: start: 20180603
  4. IBUPROFEN. [Concomitant]
     Active Substance: IBUPROFEN
     Route: 065
  5. DALTEPARIN SODIUM [Concomitant]
     Active Substance: DALTEPARIN SODIUM
     Route: 065
  6. CALCICHEW D3 [Concomitant]
     Active Substance: CALCIUM\CHOLECALCIFEROL
     Route: 065
  7. PARACETAMOL [Concomitant]
     Active Substance: ACETAMINOPHEN
     Route: 065
  8. ORAMORPH [Concomitant]
     Active Substance: MORPHINE SULFATE
     Route: 065
  9. OMEPRAZOLE MAGNESIUM. [Concomitant]
     Active Substance: OMEPRAZOLE MAGNESIUM
     Route: 065
  10. ALENDRONIC ACID [Concomitant]
     Active Substance: ALENDRONIC ACID
     Route: 065

REACTIONS (4)
  - Haematemesis [Unknown]
  - Upper gastrointestinal haemorrhage [Not Recovered/Not Resolved]
  - Confusional state [Unknown]
  - Malaise [Unknown]

NARRATIVE: CASE EVENT DATE: 20180603
